FAERS Safety Report 5910112-9 (Version None)
Quarter: 2008Q4

REPORT INFORMATION
  Report Type: 
  Country: None (occurrence: None)
  Receive Date: 20081007
  Receipt Date: 20070917
  Transmission Date: 20090506
  Serious: No
  Sender: FDA-Public Use
  Company Number: US-ASTRAZENECA-2007UW21942

PATIENT
  Age: 66 Year
  Sex: Female
  Weight: 62.1 kg

DRUGS (2)
  1. ARIMIDEX [Suspect]
     Indication: BREAST CANCER
     Route: 048
     Dates: start: 20070101
  2. CLINDAMYCIN HCL [Concomitant]

REACTIONS (6)
  - DROOLING [None]
  - FATIGUE [None]
  - HEADACHE [None]
  - HOT FLUSH [None]
  - PAIN IN EXTREMITY [None]
  - PRURITUS [None]
